FAERS Safety Report 15439550 (Version 6)
Quarter: 2018Q4

REPORT INFORMATION
  Report Type: Spontaneous
  Country: LV (occurrence: LV)
  Receive Date: 20180928
  Receipt Date: 20181210
  Transmission Date: 20190204
  Serious: Yes (Hospitalization, Disabling, Congenital Anomaly)
  Sender: FDA-Public Use
  Company Number: LV-LPDUSPRD-20181739

PATIENT
  Sex: Female
  Weight: 1.52 kg

DRUGS (8)
  1. CEFUROXIME. [Suspect]
     Active Substance: CEFUROXIME
     Dosage: 1500 MG (750 MG, 2 IN 1 D)
     Route: 064
  2. MALTOFER (FERRIC HYDROXIDEL POLUMALTOSE COMPLEX) [Suspect]
     Active Substance: IRON POLYMALTOSE
     Dosage: UNKNOWN
     Route: 064
  3. AZITHROMYCINUM (AZITHROMYCIN) [Suspect]
     Active Substance: AZITHROMYCIN
     Dosage: 500 MG (500 MG, 1 IN 1 D)
     Route: 064
  4. VENOFER [Suspect]
     Active Substance: IRON SUCROSE
     Dosage: 100 MG
     Route: 064
  5. PARACETAMOL [Suspect]
     Active Substance: ACETAMINOPHEN
     Dosage: 1000 MG (500 MG, 2 IN 1 D)
     Route: 064
  6. FERRUM [Suspect]
     Active Substance: FERROUS FUMARATE
     Dosage: 100 MG THREE TIMES A DAY
     Route: 064
  7. FERINJECT [Suspect]
     Active Substance: FERRIC CARBOXYMALTOSE
     Dosage: 50 DOSAGE FORMS
     Route: 064
  8. PENICILLIN G BENZATHINE [Suspect]
     Active Substance: PENICILLIN G BENZATHINE
     Dosage: 4 GM (1 GM, 4 IN 1 D)
     Route: 064

REACTIONS (2)
  - Foetal exposure during pregnancy [Unknown]
  - Anal atresia [Not Recovered/Not Resolved]
